FAERS Safety Report 9685669 (Version 3)
Quarter: 2014Q2

REPORT INFORMATION
  Report Type: Spontaneous
  Country: US (occurrence: US)
  Receive Date: 20131113
  Receipt Date: 20140417
  Transmission Date: 20141212
  Serious: Yes (Other)
  Sender: FDA-Public Use
  Company Number: US-PFIZER INC-2013319662

PATIENT
  Sex: Female

DRUGS (1)
  1. XALATAN [Suspect]
     Dosage: UNK

REACTIONS (5)
  - Injury [Unknown]
  - Spinal disorder [Unknown]
  - Sciatica [Unknown]
  - Pain [Unknown]
  - Malaise [Unknown]
